FAERS Safety Report 7394461-6 (Version None)
Quarter: 2011Q2

REPORT INFORMATION
  Report Type: 
  Country: None (occurrence: None)
  Receive Date: 20110405
  Receipt Date: 20110322
  Transmission Date: 20111010
  Serious: Yes (Other)
  Sender: FDA-Public Use
  Company Number: PHHY2011US24323

PATIENT
  Age: 23 Year
  Sex: Female

DRUGS (7)
  1. CLARITIN [Concomitant]
  2. FANAPT [Suspect]
     Dosage: 12 MG, QD
  3. LAMICTAL [Concomitant]
  4. FANAPT [Suspect]
     Dosage: 6 MG, QD
  5. BENZTROPINE MESYLATE [Concomitant]
  6. CEREFOLIN [Concomitant]
  7. CELEXA [Concomitant]

REACTIONS (2)
  - INSOMNIA [None]
  - PSYCHOTIC DISORDER [None]
